FAERS Safety Report 9304893 (Version 1)
Quarter: 2013Q2

REPORT INFORMATION
  Report Type: Spontaneous
  Country: US (occurrence: None)
  Receive Date: 20130521
  Receipt Date: 20130521
  Transmission Date: 20140414
  Serious: Yes (Other)
  Sender: FDA-Public Use
  Company Number: None

PATIENT
  Age: 60 Year
  Sex: Male
  Weight: 89.81 kg

DRUGS (1)
  1. VIAGRA [Suspect]
     Indication: ERECTILE DYSFUNCTION
     Route: 048
     Dates: start: 20130105, end: 20130519

REACTIONS (6)
  - Dizziness [None]
  - Photophobia [None]
  - Vision blurred [None]
  - Visual impairment [None]
  - Headache [None]
  - Nausea [None]
